FAERS Safety Report 10247989 (Version 1)
Quarter: 2014Q2

REPORT INFORMATION
  Report Type: Spontaneous
  Country: GR (occurrence: GR)
  Receive Date: 20140619
  Receipt Date: 20140619
  Transmission Date: 20141212
  Serious: Yes (Death, Other)
  Sender: FDA-Public Use
  Company Number: GR-BAXTER-2014BAX031047

PATIENT
  Age: 32 Year
  Sex: Female

DRUGS (4)
  1. KIOVIG 100 MG/ML SOLUTION FOR INFUSION [Suspect]
     Indication: THROMBOTIC THROMBOCYTOPENIC PURPURA
     Dosage: 2 G/KG
     Route: 042
  2. ENDOXAN 500 MG - POWDER FOR SOLUTION FOR INJECTION [Suspect]
     Indication: THROMBOTIC THROMBOCYTOPENIC PURPURA
     Route: 065
  3. METHYLPREDNISOLONE [Suspect]
     Indication: THROMBOTIC THROMBOCYTOPENIC PURPURA
     Route: 065
  4. PREDNISOLONE [Suspect]
     Indication: THROMBOTIC THROMBOCYTOPENIC PURPURA
     Route: 065

REACTIONS (5)
  - General physical health deterioration [Not Recovered/Not Resolved]
  - Nervous system disorder [Unknown]
  - Convulsion [Unknown]
  - Confusional state [Unknown]
  - Cardiac arrest [Fatal]
